FAERS Safety Report 16842570 (Version 1)
Quarter: 2019Q3

REPORT INFORMATION
  Report Type: Spontaneous
  Country: GB (occurrence: GB)
  Receive Date: 20190924
  Receipt Date: 20190924
  Transmission Date: 20191005
  Serious: Yes (Hospitalization)
  Sender: FDA-Public Use
  Company Number: GB-TEVA-2019-GB-1111058

PATIENT
  Age: 54 Year
  Sex: Male

DRUGS (5)
  1. SERTRALINE [Concomitant]
     Active Substance: SERTRALINE HYDROCHLORIDE
  2. CARBOCISTEINE [Concomitant]
     Active Substance: CARBOCYSTEINE
  3. CLARITHROMYCIN. [Suspect]
     Active Substance: CLARITHROMYCIN
     Indication: PNEUMONIA
     Route: 042
  4. FUROSEMIDE. [Concomitant]
     Active Substance: FUROSEMIDE
  5. BENZYLPENICILLIN [Suspect]
     Active Substance: PENICILLIN G
     Indication: PNEUMONIA
     Route: 042

REACTIONS (2)
  - Liver injury [Unknown]
  - Alanine aminotransferase increased [Unknown]
